FAERS Safety Report 7376662-6 (Version None)
Quarter: 2011Q1

REPORT INFORMATION
  Report Type: 
  Country: None (occurrence: None)
  Receive Date: 20110325
  Receipt Date: 20110322
  Transmission Date: 20110831
  Serious: Yes (Other)
  Sender: FDA-Public Use
  Company Number: GB-PFIZER INC-2011063871

PATIENT
  Age: 59 Year
  Sex: Female

DRUGS (4)
  1. TOPAMAX [Suspect]
     Indication: EPILEPSY
     Dosage: 90 MG, 1X/DAY
     Route: 048
     Dates: start: 20091001
  2. TOPAMAX [Suspect]
     Dosage: 70 MG, UNK
     Route: 048
  3. PHENYTOIN [Concomitant]
     Dosage: 250 MG, 1X/DAY
     Dates: start: 20070101
  4. GABAPENTIN [Suspect]
     Dosage: 600 MG, 1X/DAY
     Dates: start: 20070101, end: 20100101

REACTIONS (9)
  - HYPOAESTHESIA [None]
  - PAIN IN EXTREMITY [None]
  - EYE PAIN [None]
  - FOREIGN BODY SENSATION IN EYES [None]
  - FACIAL PAIN [None]
  - PARAESTHESIA [None]
  - VISION BLURRED [None]
  - EYE HAEMORRHAGE [None]
  - DRUG INEFFECTIVE [None]
